FAERS Safety Report 5406298-5 (Version None)
Quarter: 2007Q3

REPORT INFORMATION
  Report Type: 
  Country: None (occurrence: None)
  Receive Date: 20070806
  Receipt Date: 20070801
  Transmission Date: 20080115
  Serious: Yes (Hospitalization)
  Sender: FDA-Public Use
  Company Number: DEWYE118601AUG07

PATIENT
  Sex: Male

DRUGS (2)
  1. REFACTO [Suspect]
     Indication: FACTOR VIII DEFICIENCY
     Route: 042
     Dates: start: 20020327, end: 20020403
  2. REFACTO [Suspect]
     Indication: SURGERY

REACTIONS (1)
  - CENTRAL VENOUS CATHETER REMOVAL [None]
